FAERS Safety Report 5148567-2 (Version None)
Quarter: 2006Q4

REPORT INFORMATION
  Report Type: 
  Country: None (occurrence: None)
  Receive Date: 20061107
  Receipt Date: 20061023
  Transmission Date: 20070319
  Serious: Yes (Death)
  Sender: FDA-Public Use
  Company Number: 2006S1008659

PATIENT
  Age: 74 Year
  Sex: Male
  Weight: 57.6068 kg

DRUGS (7)
  1. CLOZAPINE [Suspect]
     Indication: SCHIZOPHRENIA
     Dosage: SEE IMAGE
     Route: 048
     Dates: start: 20060401, end: 20060801
  2. CLOZAPINE [Suspect]
     Indication: SCHIZOPHRENIA
     Dosage: SEE IMAGE
     Route: 048
     Dates: start: 20060401, end: 20060801
  3. LEVOTHYROXINE SODIUM [Concomitant]
  4. PRILOSEC/00661201/ [Concomitant]
  5. REMERON [Concomitant]
  6. LACTULOSE [Concomitant]
  7. MEGACEORALSUSPENSION [Concomitant]

REACTIONS (1)
  - DEATH [None]
